FAERS Safety Report 8443034-2 (Version None)
Quarter: 2012Q2

REPORT INFORMATION
  Report Type: 
  Country: None (occurrence: None)
  Receive Date: 20120615
  Receipt Date: 20120611
  Transmission Date: 20120825
  Serious: Yes (Hospitalization, Disabling, Other)
  Sender: FDA-Public Use
  Company Number: PHHY2012NO049944

PATIENT
  Sex: Male

DRUGS (15)
  1. PENTASA [Concomitant]
     Dosage: 500 MG, BID
     Route: 065
  2. REMICADE [Suspect]
     Indication: ANKYLOSING SPONDYLITIS
     Route: 042
     Dates: start: 20080101
  3. PLAVIX [Concomitant]
     Dosage: 75 MG, QD
  4. ENOXAPARIN SODIUM [Concomitant]
     Dosage: 80 MG, BID
  5. ASPIRIN [Concomitant]
  6. SIMVASTATIN [Suspect]
     Indication: PRODUCT USED FOR UNKNOWN INDICATION
     Route: 065
     Dates: start: 20110601
  7. LOPERAMIDE [Concomitant]
     Route: 065
  8. METOPROLOL SUCCINATE [Concomitant]
     Dosage: 100 MG, QD
     Route: 065
  9. PARALGIN FORTE [Concomitant]
     Route: 065
  10. FUROSEMIDE [Concomitant]
     Dosage: 20 MG, BID
  11. ATACAND [Concomitant]
     Route: 065
  12. REMICADE [Suspect]
     Route: 042
     Dates: start: 20110608, end: 20110601
  13. ACETAMINOPHEN [Concomitant]
     Route: 065
  14. ATACAND HCT [Concomitant]
     Dosage: 1 DF, QD
     Route: 065
  15. ASPIRIN [Concomitant]
     Dosage: 75 MG, QD

REACTIONS (9)
  - INTESTINAL STENOSIS [None]
  - ATRIAL FIBRILLATION [None]
  - CARDIAC FAILURE [None]
  - SYSTOLIC DYSFUNCTION [None]
  - PULMONARY CONGESTION [None]
  - DILATATION VENTRICULAR [None]
  - AORTIC VALVE INCOMPETENCE [None]
  - CORONARY ARTERY STENOSIS [None]
  - DYSPNOEA [None]
